FAERS Safety Report 6594492-X (Version None)
Quarter: 2010Q1

REPORT INFORMATION
  Report Type: 
  Country: None (occurrence: None)
  Receive Date: 20100222
  Receipt Date: 20100217
  Transmission Date: 20100710
  Serious: Yes (Death)
  Sender: FDA-Public Use
  Company Number: DE-BAYER-201016115GPV

PATIENT
  Age: 72 Year
  Sex: Female

DRUGS (3)
  1. AVALOX (KOHLPHARMA) MOXIFLOXACIN RE-IMPORT [Suspect]
     Indication: DRUG USE FOR UNKNOWN INDICATION
     Route: 048
     Dates: start: 20091215
  2. OMETAD [Concomitant]
  3. MUCOSOLVAN [Concomitant]
     Dates: start: 20091101

REACTIONS (1)
  - DEATH [None]
